FAERS Safety Report 5222605-0 (Version None)
Quarter: 2006Q4

REPORT INFORMATION
  Report Type: 
  Country: None (occurrence: None)
  Receive Date: 20061201
  Receipt Date: 20060714
  Transmission Date: 20070319
  Serious: No
  Sender: FDA-Public Use
  Company Number: 2006PV017550

PATIENT
  Age: 39 Year
  Sex: Female
  Weight: 77.1115 kg

DRUGS (8)
  1. BYETTA [Suspect]
     Indication: DIABETES MELLITUS NON-INSULIN-DEPENDENT
     Dosage: 5 MCG BID SC
     Route: 058
     Dates: start: 20060628
  2. DYAZIDE [Concomitant]
  3. PEPCID [Concomitant]
  4. AVAPRO [Concomitant]
  5. GLUCOPHAGE [Concomitant]
  6. LEVOTHYROXINE SODIUM [Concomitant]
  7. PAXIL [Concomitant]
  8. PEPCID [Concomitant]

REACTIONS (8)
  - ABDOMINAL PAIN [None]
  - BLOOD CREATININE INCREASED [None]
  - CONSTIPATION [None]
  - DEHYDRATION [None]
  - DIARRHOEA [None]
  - FEELING ABNORMAL [None]
  - HYPOTENSION [None]
  - NAUSEA [None]
